FAERS Safety Report 5149724-1 (Version None)
Quarter: 2006Q4

REPORT INFORMATION
  Report Type: 
  Country: None (occurrence: None)
  Receive Date: 20061113
  Receipt Date: 20061004
  Transmission Date: 20070319
  Serious: Yes (Other)
  Sender: FDA-Public Use
  Company Number: LB-NOVOPROD-258455

PATIENT
  Sex: Male
  Weight: 64.5 kg

DRUGS (1)
  1. NORDITROPIN NORDILET [Suspect]
     Indication: GROWTH HORMONE DEFICIENCY
     Dosage: 22 UNK, UNK
     Dates: start: 20060829, end: 20060906

REACTIONS (3)
  - HEADACHE [None]
  - OEDEMA PERIPHERAL [None]
  - SYNCOPE [None]
